FAERS Safety Report 6216700-7 (Version None)
Quarter: 2009Q2

REPORT INFORMATION
  Report Type: 
  Country: None (occurrence: None)
  Receive Date: 20090605
  Receipt Date: 20090528
  Transmission Date: 20091009
  Serious: Yes (Other)
  Sender: FDA-Public Use
  Company Number: US-ABBOTT-09P-163-0576319-00

PATIENT
  Age: 37 Year
  Sex: Female

DRUGS (3)
  1. LUPRON DEPOT [Suspect]
     Indication: ENDOMETRIOSIS
     Route: 050
     Dates: start: 20081101, end: 20081101
  2. LUPRON DEPOT [Suspect]
     Indication: ENDOMETRIAL NEOPLASM
  3. LUPRON DEPOT [Suspect]
     Indication: PELVIC PAIN

REACTIONS (3)
  - DRUG INEFFECTIVE [None]
  - OVARIAN NEOPLASM [None]
  - VAGINAL HAEMORRHAGE [None]
